FAERS Safety Report 13767936 (Version 14)
Quarter: 2017Q3

REPORT INFORMATION
  Report Type: Spontaneous
  Country: IT (occurrence: IT)
  Receive Date: 20170719
  Receipt Date: 20170928
  Transmission Date: 20171127
  Serious: Yes (Hospitalization, Other)
  Sender: FDA-Public Use
  Company Number: IT-PFIZER INC-2017311130

PATIENT
  Age: 84 Year
  Sex: Male

DRUGS (6)
  1. ELIQUIS [Suspect]
     Active Substance: APIXABAN
     Indication: CEREBROVASCULAR ACCIDENT PROPHYLAXIS
     Dosage: 2.5 MG, 2X/DAY
     Route: 048
     Dates: start: 201610, end: 20170710
  2. LANSOPRAZOLE. [Concomitant]
     Active Substance: LANSOPRAZOLE
     Dosage: 30 MG, 1X/DAY
  3. CORDARONE [Suspect]
     Active Substance: AMIODARONE HYDROCHLORIDE
     Dosage: 200 MG, 1X/DAY (1 TABLET PER DAY FROM MONDAY TO FRIDAY)
     Route: 048
     Dates: end: 20170710
  4. EN [Concomitant]
     Active Substance: DELORAZEPAM
     Dosage: 1 DF, 1X/DAY (10 DROPS IN EVENING)
  5. ELIQUIS [Suspect]
     Active Substance: APIXABAN
     Indication: ATRIAL FIBRILLATION
  6. TORVAST [Concomitant]
     Active Substance: ATORVASTATIN
     Dosage: 40 MG, 1X/DAY IN EVENING

REACTIONS (1)
  - Autoimmune haemolytic anaemia [Unknown]

NARRATIVE: CASE EVENT DATE: 20170703
